FAERS Safety Report 9581705 (Version 1)
Quarter: 2013Q4

REPORT INFORMATION
  Report Type: Spontaneous
  Country: DE (occurrence: DE)
  Receive Date: 20131002
  Receipt Date: 20131002
  Transmission Date: 20140711
  Serious: Yes (Hospitalization)
  Sender: FDA-Public Use
  Company Number: DE-CUBIST PHARMACEUTICALS, INC.-2013CBST000869

PATIENT
  Sex: 0

DRUGS (2)
  1. CUBICIN [Suspect]
     Indication: SKIN INFECTION
     Dosage: 350 MG, UNK
     Route: 065
     Dates: start: 20130912, end: 20130923
  2. CUBICIN [Suspect]
     Indication: SOFT TISSUE INFECTION

REACTIONS (2)
  - Hyponatraemia [Not Recovered/Not Resolved]
  - Electrolyte imbalance [Not Recovered/Not Resolved]
